FAERS Safety Report 7674294-3 (Version None)
Quarter: 2011Q3

REPORT INFORMATION
  Report Type: 
  Country: None (occurrence: None)
  Receive Date: 20110810
  Receipt Date: 20101004
  Transmission Date: 20111222
  Serious: No
  Sender: FDA-Public Use
  Company Number: US-BAUSCH-2010BL005628

PATIENT
  Age: 64 Year
  Sex: Female

DRUGS (3)
  1. CROMOLYN SODIUM [Suspect]
     Route: 047
     Dates: start: 20101004, end: 20101004
  2. ZADITOR [Concomitant]
     Indication: EYE ALLERGY
     Route: 047
  3. DIPHENHYDRAMINE HCL [Concomitant]
     Indication: HYPERSENSITIVITY
     Route: 048

REACTIONS (3)
  - ACCIDENTAL EXPOSURE [None]
  - INSTILLATION SITE PAIN [None]
  - OCULAR HYPERAEMIA [None]
